FAERS Safety Report 24074894 (Version 1)
Quarter: 2024Q3

REPORT INFORMATION
  Report Type: Report from Study
  Country: CA (occurrence: CA)
  Receive Date: 20240710
  Receipt Date: 20240710
  Transmission Date: 20241017
  Serious: Yes (Other)
  Sender: ABBVIE
  Company Number: CA-ABBVIE-5831187

PATIENT
  Sex: Female
  Weight: 70 kg

DRUGS (2)
  1. SKYRIZI [Suspect]
     Active Substance: RISANKIZUMAB-RZAA
     Indication: Crohn^s disease
     Dosage: LDD: JUNE 29 2024
     Route: 058
     Dates: start: 20231214
  2. PREDNISOLONE [Suspect]
     Active Substance: PREDNISOLONE
     Indication: Product used for unknown indication
     Route: 065

REACTIONS (11)
  - Intestinal obstruction [Recovered/Resolved]
  - Eye inflammation [Unknown]
  - Eye infection [Unknown]
  - Aphthous ulcer [Unknown]
  - Intestinal fistula [Unknown]
  - Malaise [Unknown]
  - Abdominal pain [Unknown]
  - Ileostomy [Unknown]
  - Arthralgia [Unknown]
  - Fall [Unknown]
  - Immunodeficiency [Unknown]

NARRATIVE: CASE EVENT DATE: 20240101
